FAERS Safety Report 15173061 (Version 2)
Quarter: 2018Q4

REPORT INFORMATION
  Report Type: Report from Study
  Country: RU (occurrence: RU)
  Receive Date: 20180720
  Receipt Date: 20181207
  Transmission Date: 20190204
  Serious: Yes (Hospitalization)
  Sender: FDA-Public Use
  Company Number: RU-ASTRAZENECA-2018SE79133

PATIENT
  Age: 82 Year
  Sex: Female
  Weight: 65 kg

DRUGS (6)
  1. CORDARONE [Concomitant]
     Active Substance: AMIODARONE HYDROCHLORIDE
  2. VEROSPIRON [Concomitant]
     Active Substance: SPIRONOLACTONE
  3. LASOLVAN [Concomitant]
     Active Substance: AMBROXOL HYDROCHLORIDE
  4. BRILINTA [Suspect]
     Active Substance: TICAGRELOR
     Indication: MYOCARDIAL INFARCTION
     Route: 048
     Dates: start: 201712
  5. ACETYLSALICYLIC ACID [Concomitant]
     Active Substance: ASPIRIN
  6. LOSARTAN. [Concomitant]
     Active Substance: LOSARTAN

REACTIONS (5)
  - Ventricular arrhythmia [Recovered/Resolved]
  - Pruritus generalised [Not Recovered/Not Resolved]
  - Pneumonia [Recovered/Resolved]
  - Blood pressure decreased [Recovered/Resolved]
  - Nasopharyngitis [Unknown]
